FAERS Safety Report 21789903 (Version 7)
Quarter: 2023Q4

REPORT INFORMATION
  Report Type: Report from Study
  Country: TW (occurrence: TW)
  Receive Date: 20221228
  Receipt Date: 20231226
  Transmission Date: 20240109
  Serious: Yes (Hospitalization, Other)
  Sender: FDA-Public Use
  Company Number: TW-002147023-NVSC2022TW294826

PATIENT
  Age: 79 Year
  Sex: Male
  Weight: 79.4 kg

DRUGS (7)
  1. PLUVICTO [Suspect]
     Active Substance: LUTETIUM LU-177 VIPIVOTIDE TETRAXETAN
     Indication: Hormone-refractory prostate cancer
     Dosage: 89 MCI (1ST DOSE)
     Route: 042
     Dates: start: 20221114
  2. PLUVICTO [Suspect]
     Active Substance: LUTETIUM LU-177 VIPIVOTIDE TETRAXETAN
     Dosage: 84 MCI (2ND DOSE OF PLUVICTO)
     Route: 065
     Dates: start: 20230103
  3. PLUVICTO [Suspect]
     Active Substance: LUTETIUM LU-177 VIPIVOTIDE TETRAXETAN
     Dosage: 80 MCI
     Route: 065
  4. CALCIUM CHLORIDE\DEXTROSE\MAGNESIUM CHLORIDE\SODIUM CHLORIDE\SODIUM LA [Concomitant]
     Active Substance: CALCIUM CHLORIDE\DEXTROSE\MAGNESIUM CHLORIDE\SODIUM CHLORIDE\SODIUM LACTATE
     Indication: Product used for unknown indication
     Dosage: 6.88 MCI (120 LITERS), DURING  FIRST TREATMENT(DIALYSATE 1 AT 21:30 HR/MIN WAS 0.93 MCI, DIALYSATE 2
     Route: 065
  5. CALCIUM CHLORIDE\DEXTROSE\MAGNESIUM CHLORIDE\SODIUM CHLORIDE\SODIUM LA [Concomitant]
     Active Substance: CALCIUM CHLORIDE\DEXTROSE\MAGNESIUM CHLORIDE\SODIUM CHLORIDE\SODIUM LACTATE
     Dosage: 2.13 MCI (90 LITERS), DURING FIRST TREATMENT (DIALYSATE 1 AT 69:30 HR/MIN WAS 0.45 MCI, DIALYSATE 2
     Route: 065
  6. CALCIUM CHLORIDE\DEXTROSE\MAGNESIUM CHLORIDE\SODIUM CHLORIDE\SODIUM LA [Concomitant]
     Active Substance: CALCIUM CHLORIDE\DEXTROSE\MAGNESIUM CHLORIDE\SODIUM CHLORIDE\SODIUM LACTATE
     Dosage: 6.62 MCI (120 LITERS), DURING SECOND TREATMENT (DIALYSATE 1 AT 22:10 HR/MIN WAS 1.65 MCI, DIALYSATE
     Route: 065
  7. CALCIUM CHLORIDE\DEXTROSE\MAGNESIUM CHLORIDE\SODIUM CHLORIDE\SODIUM LA [Concomitant]
     Active Substance: CALCIUM CHLORIDE\DEXTROSE\MAGNESIUM CHLORIDE\SODIUM CHLORIDE\SODIUM LACTATE
     Dosage: 1.28 MCI (120 LITERS), DURING SECOND TREATMENT (DIALYSATE 1 AT 70:10 HR/MIN WAS 0.35 MCI, DIALYSATE
     Route: 065

REACTIONS (6)
  - Cholecystitis [Recovered/Resolved]
  - Pyrexia [Recovered/Resolved]
  - Lower gastrointestinal haemorrhage [Unknown]
  - Thrombocytopenia [Unknown]
  - Infection [Unknown]
  - Prostatic specific antigen increased [Recovered/Resolved]

NARRATIVE: CASE EVENT DATE: 20221208
